FAERS Safety Report 17695373 (Version 1)
Quarter: 2020Q2

REPORT INFORMATION
  Report Type: Report from Study
  Country: US (occurrence: US)
  Receive Date: 20200423
  Receipt Date: 20200423
  Transmission Date: 20200714
  Serious: Yes (Hospitalization)
  Sender: FDA-Public Use
  Company Number: US-BAXTER-2020BAX008537

PATIENT
  Age: 2 Year
  Sex: Male
  Weight: 9.8 kg

DRUGS (12)
  1. VINCRISTINE SULFATE. [Suspect]
     Active Substance: VINCRISTINE SULFATE
     Indication: EMBRYONAL RHABDOMYOSARCOMA
     Dosage: COURSE: 1-8, PER DOSING TABLE IV OVER 1 MIN OR INFUSION VIA MINIBAG ON DAY 1,8,15 ON CYCLE 1-4
     Route: 042
     Dates: start: 20190923
  2. VINCRISTINE SULFATE. [Suspect]
     Active Substance: VINCRISTINE SULFATE
     Dosage: LAST ADMINISTERED DOSE
     Route: 042
     Dates: start: 20200313, end: 20200313
  3. TEMSIROLIMUS. [Suspect]
     Active Substance: TEMSIROLIMUS
     Dosage: LAST DOSE PRIOR TO SAE
     Route: 042
     Dates: start: 20191209, end: 20191209
  4. TEMSIROLIMUS. [Suspect]
     Active Substance: TEMSIROLIMUS
     Dosage: COURSE 9, TOTAL DOSE 0 MG
     Route: 042
     Dates: start: 20200316
  5. CAMPTOSAR [Suspect]
     Active Substance: IRINOTECAN HYDROCHLORIDE
     Indication: EMBRYONAL RHABDOMYOSARCOMA
     Dosage: COURSE: 1-8, PER DOSING TABLE IV OVER 90 MINUTES ON DAYS 1-5 OF CYCLES 2, 4, 6,7 AND 9
     Route: 042
     Dates: start: 20190923
  6. TEMSIROLIMUS. [Suspect]
     Active Substance: TEMSIROLIMUS
     Indication: EMBRYONAL RHABDOMYOSARCOMA
     Dosage: COURSES: 1-8, 0.5 MG/KG OVER 30-60 MINUTES ON DAYS 1, 8, AND 15 ON CYCLES 1-4 AND CYCLES 8-9
     Route: 042
     Dates: start: 20190923
  7. DACTINOMYCIN [Suspect]
     Active Substance: DACTINOMYCIN
     Indication: EMBRYONAL RHABDOMYOSARCOMA
     Dosage: COURSES: 1-8, PER DOSING TABLE IV OVER 1-5 MINUTES ON DAY 1 OF CYCLES 1, 3, 5, 8 AND 10
     Route: 042
     Dates: start: 20190923
  8. VINCRISTINE SULFATE. [Suspect]
     Active Substance: VINCRISTINE SULFATE
     Dosage: COURSE 9, TOTAL DOSE 1.48 MG
     Route: 042
     Dates: start: 20200316
  9. CAMPTOSAR [Suspect]
     Active Substance: IRINOTECAN HYDROCHLORIDE
     Dosage: LAST DOSE PRIOR TO SAE
     Route: 042
     Dates: start: 20200313, end: 20200313
  10. CYCLOPHOSPHAMIDE FOR INJECTION, USP [Suspect]
     Active Substance: CYCLOPHOSPHAMIDE
     Indication: EMBRYONAL RHABDOMYOSARCOMA
     Dosage: COURSES: 1-8, PER DOSING TABLE IV OVER 60 MINUTES ON DAY 1 OF CYCLES 1, 3, 5,8 AND 10
     Route: 042
     Dates: start: 20190923
  11. VINCRISTINE SULFATE. [Suspect]
     Active Substance: VINCRISTINE SULFATE
     Dosage: PER DOSING TABLE IV OVER 1 MIN OR INFUSION VIA MINIBAG ON DAY 1 OF CYCLES 5 AND 10
     Route: 042
  12. CAMPTOSAR [Suspect]
     Active Substance: IRINOTECAN HYDROCHLORIDE
     Dosage: COURSE 9, TOTAL DOSE 120 MG
     Route: 042
     Dates: start: 20200316

REACTIONS (3)
  - Acute kidney injury [Unknown]
  - Weight decreased [Unknown]
  - Bladder spasm [Unknown]

NARRATIVE: CASE EVENT DATE: 20200316
